FAERS Safety Report 25566129 (Version 1)
Quarter: 2025Q3

REPORT INFORMATION
  Report Type: Spontaneous
  Country: JP (occurrence: JP)
  Receive Date: 20250716
  Receipt Date: 20250716
  Transmission Date: 20251020
  Serious: Yes (Other)
  Sender: OTSUKA
  Company Number: None

PATIENT
  Age: 4 Decade
  Sex: Female
  Weight: 55 kg

DRUGS (5)
  1. REXULTI [Suspect]
     Active Substance: BREXPIPRAZOLE
     Indication: Neuropsychiatric lupus
     Route: 065
  2. REXULTI [Suspect]
     Active Substance: BREXPIPRAZOLE
     Indication: Affect lability
  3. OLANZAPINE [Suspect]
     Active Substance: OLANZAPINE
     Indication: Neuropsychiatric lupus
     Route: 065
  4. PEROSPIRONE HYDROCHLORIDE [Suspect]
     Active Substance: PEROSPIRONE HYDROCHLORIDE
     Indication: Hyponatraemia
     Route: 065
  5. RISPERIDONE [Suspect]
     Active Substance: RISPERIDONE
     Indication: Neuropsychiatric lupus
     Route: 048

REACTIONS (6)
  - Tardive akathisia [Recovering/Resolving]
  - Pancytopenia [Recovering/Resolving]
  - Cytomegalovirus enteritis [Recovering/Resolving]
  - Deep vein thrombosis [Unknown]
  - Pulmonary embolism [Unknown]
  - Off label use [Unknown]
